FAERS Safety Report 5702032-X (Version None)
Quarter: 2008Q2

REPORT INFORMATION
  Report Type: 
  Country: None (occurrence: None)
  Receive Date: 20080411
  Receipt Date: 20070430
  Transmission Date: 20081010
  Serious: No
  Sender: FDA-Public Use
  Company Number: US-ABBOTT-07P-163-0367414-00

PATIENT
  Age: 27 Year
  Sex: Male

DRUGS (1)
  1. DEPAKOTE [Suspect]
     Indication: MOOD SWINGS
     Route: 048
     Dates: start: 20070401

REACTIONS (2)
  - GAIT DISTURBANCE [None]
  - WEIGHT BEARING DIFFICULTY [None]
